FAERS Safety Report 13555424 (Version 2)
Quarter: 2017Q2

REPORT INFORMATION
  Report Type: Spontaneous
  Country: US (occurrence: US)
  Receive Date: 20170517
  Receipt Date: 20170531
  Transmission Date: 20170830
  Serious: Yes (Other)
  Sender: FDA-Public Use
  Company Number: PHEH2017US014032

PATIENT
  Age: 50 Year
  Sex: Female
  Weight: 88.5 kg

DRUGS (11)
  1. IBRANCE [Suspect]
     Active Substance: PALBOCICLIB
     Indication: BREAST CANCER
     Dosage: 125 MG, QD
     Route: 048
     Dates: start: 20160819
  2. ALPRAZOLAM. [Concomitant]
     Active Substance: ALPRAZOLAM
     Indication: ANXIETY
     Dosage: 0.25 MG, PRN
     Route: 048
     Dates: start: 20160526
  3. LETROZOLE. [Concomitant]
     Active Substance: LETROZOLE
     Indication: NEOPLASM MALIGNANT
     Dosage: 25 MG, QD
     Route: 048
     Dates: start: 20160603
  4. TYLENOL [Concomitant]
     Active Substance: ACETAMINOPHEN
     Indication: PAIN
     Dosage: 1-7 PRN Q4
     Route: 048
     Dates: start: 20160615
  5. FEMARA [Suspect]
     Active Substance: LETROZOLE
     Indication: BREAST CANCER STAGE IV
     Dosage: 2.5 MG, QD
     Route: 048
     Dates: start: 20160603
  6. GABAPENTIN. [Concomitant]
     Active Substance: GABAPENTIN
     Indication: HOT FLUSH
     Dosage: 300 MG, QHS
     Route: 048
     Dates: start: 20160902
  7. COMPAZINE [Concomitant]
     Active Substance: PROCHLORPERAZINE MALEATE
     Indication: NAUSEA
     Dosage: 10 MG, PRN
     Route: 048
     Dates: start: 20160617, end: 20170504
  8. PANTOPRAZOLE [Concomitant]
     Active Substance: PANTOPRAZOLE
     Indication: GASTRITIS
     Dosage: 40 MG, QD
     Route: 048
     Dates: start: 20161208
  9. IMITREX [Concomitant]
     Active Substance: SUMATRIPTAN SUCCINATE
     Indication: MIGRAINE
     Dosage: 50 MG, PRN
     Route: 048
     Dates: start: 20160617
  10. MELOXICAM. [Concomitant]
     Active Substance: MELOXICAM
     Indication: MYALGIA
     Dosage: 15 MG, QD
     Route: 048
     Dates: start: 201504
  11. TIZANIDINE. [Concomitant]
     Active Substance: TIZANIDINE
     Indication: MUSCLE SPASMS
     Dosage: 4 MG, PRN
     Route: 048
     Dates: start: 201504, end: 20170319

REACTIONS (18)
  - Haematocrit increased [Unknown]
  - Platelet count decreased [Unknown]
  - Neutrophil count increased [Unknown]
  - Leukopenia [Unknown]
  - Mean cell volume increased [Unknown]
  - Red cell distribution width increased [Unknown]
  - Basophil count increased [Unknown]
  - Red blood cell count decreased [Unknown]
  - Neutropenia [Not Recovered/Not Resolved]
  - Mean cell haemoglobin increased [Unknown]
  - Lymphocyte count decreased [Unknown]
  - Haemoglobin increased [Unknown]
  - Poikilocytosis [Unknown]
  - Red blood cell count increased [Unknown]
  - Eosinophil count increased [Unknown]
  - Elliptocytosis [Unknown]
  - Haematocrit decreased [Unknown]
  - Anisocytosis [Unknown]

NARRATIVE: CASE EVENT DATE: 20160617
